FAERS Safety Report 6082745-3 (Version None)
Quarter: 2009Q1

REPORT INFORMATION
  Report Type: 
  Country: None (occurrence: None)
  Receive Date: 20090202
  Receipt Date: 20070222
  Transmission Date: 20090719
  Serious: Yes (Life-Threatening, Hospitalization)
  Sender: FDA-Public Use
  Company Number: 261070

PATIENT
  Age: 35 Year
  Sex: Female
  Weight: 136.1 kg

DRUGS (4)
  1. NOVOLOG [Suspect]
     Indication: TYPE 1 DIABETES MELLITUS
     Dosage: 150 IU, QD + SLIDING SCALE, SUBCUTAN.-PUMP
     Dates: start: 20060101
  2. LEXAPRO [Concomitant]
  3. SYNTHROID [Concomitant]
  4. PRAVACHOL [Concomitant]

REACTIONS (1)
  - HYPOGLYCAEMIC UNCONSCIOUSNESS [None]
